FAERS Safety Report 22652529 (Version 1)
Quarter: 2023Q2

REPORT INFORMATION
  Report Type: Spontaneous
  Country: US (occurrence: US)
  Receive Date: 20230629
  Receipt Date: 20230629
  Transmission Date: 20230721
  Serious: No
  Sender: FDA-Public Use
  Company Number: US-TOLMAR, INC.-23US041550

PATIENT
  Sex: Male

DRUGS (1)
  1. JATENZO [Suspect]
     Active Substance: TESTOSTERONE UNDECANOATE
     Indication: Product used for unknown indication
     Dosage: UNK
     Dates: end: 202306

REACTIONS (1)
  - Skin exfoliation [Recovering/Resolving]
